FAERS Safety Report 9137357 (Version 1)
Quarter: 2013Q1

REPORT INFORMATION
  Report Type: Spontaneous
  Country: US (occurrence: US)
  Receive Date: 20130304
  Receipt Date: 20130304
  Transmission Date: 20140127
  Serious: No
  Sender: FDA-Public Use
  Company Number: US-ABBOTT-13P-163-1032745-00

PATIENT
  Sex: Male
  Weight: 81.72 kg

DRUGS (3)
  1. ANDROGEL [Suspect]
     Indication: BLOOD TESTOSTERONE DECREASED
     Route: 062
  2. TESTIM [Suspect]
     Indication: BLOOD TESTOSTERONE DECREASED
     Dates: start: 2004
  3. TESTIM [Suspect]
     Route: 062
     Dates: start: 201206

REACTIONS (1)
  - Blood testosterone decreased [Unknown]
